FAERS Safety Report 7016441-2 (Version None)
Quarter: 2010Q3

REPORT INFORMATION
  Report Type: 
  Country: None (occurrence: None)
  Receive Date: 20100923
  Receipt Date: 20100917
  Transmission Date: 20110219
  Serious: Yes (Hospitalization)
  Sender: FDA-Public Use
  Company Number: 2010SP043256

PATIENT
  Age: 74 Year
  Sex: Female

DRUGS (3)
  1. REBETOL [Suspect]
     Indication: HEPATITIS C
     Dosage: 600 MG; QD; PO
     Route: 048
     Dates: start: 20100622, end: 20100805
  2. INTERFERON [Suspect]
     Indication: HEPATITIS C
     Dosage: 6 MIU; QD; IV, 6 MIU; TIW; IV
     Route: 042
     Dates: start: 20100622, end: 20100719
  3. INTERFERON [Suspect]
     Indication: HEPATITIS C
     Dosage: 6 MIU; QD; IV, 6 MIU; TIW; IV
     Route: 042
     Dates: start: 20100720, end: 20100724

REACTIONS (5)
  - HAEMOLYTIC ANAEMIA [None]
  - IDIOPATHIC THROMBOCYTOPENIC PURPURA [None]
  - PSYCHIATRIC SYMPTOM [None]
  - PYREXIA [None]
  - RENAL DISORDER [None]
